FAERS Safety Report 5731219-5 (Version None)
Quarter: 2008Q2

REPORT INFORMATION
  Report Type: 
  Country: None (occurrence: None)
  Receive Date: 20080507
  Receipt Date: 20080425
  Transmission Date: 20081010
  Serious: No
  Sender: FDA-Public Use
  Company Number: US-BOEHRINGER INGELHEIM GMBH, GERMANY-2008-BP-06636BP

PATIENT
  Age: 74 Year
  Sex: Female

DRUGS (9)
  1. MIRAPEX [Suspect]
     Indication: PARKINSON'S DISEASE
     Route: 048
     Dates: start: 20080301, end: 20080401
  2. LODOSYN [Concomitant]
     Indication: PARKINSON'S DISEASE
  3. SINEMET [Concomitant]
     Indication: PARKINSON'S DISEASE
  4. CARTIA XT [Concomitant]
     Indication: HYPERTENSION
  5. LISINOPRIL [Concomitant]
     Indication: HYPERTENSION
  6. ARMOUR [Concomitant]
     Indication: THYROID DISORDER
  7. K-DUR [Concomitant]
  8. XANAX [Concomitant]
     Indication: ANXIETY
  9. ZOLOFT [Concomitant]
     Indication: DEPRESSION

REACTIONS (2)
  - DYSPNOEA [None]
  - HALLUCINATION [None]
